FAERS Safety Report 7902668-1 (Version None)
Quarter: 2011Q4

REPORT INFORMATION
  Report Type: 
  Country: None (occurrence: None)
  Receive Date: 20111108
  Receipt Date: 20111103
  Transmission Date: 20120403
  Serious: Yes (Disabling)
  Sender: FDA-Public Use
  Company Number: GB-MERCK-1111GBR00019

PATIENT
  Age: 85 Year
  Sex: Male
  Weight: 70 kg

DRUGS (4)
  1. PROSCAR [Suspect]
     Route: 048
     Dates: start: 20111028
  2. AMOXICILLIN [Concomitant]
     Route: 065
     Dates: start: 20110810, end: 20110817
  3. DIGOXIN [Concomitant]
     Route: 065
     Dates: start: 20110929, end: 20111027
  4. MIRTAZAPINE [Concomitant]
     Route: 065
     Dates: start: 20110929

REACTIONS (1)
  - DIZZINESS [None]
